FAERS Safety Report 18915586 (Version 1)
Quarter: 2021Q1

REPORT INFORMATION
  Report Type: Spontaneous
  Country: US (occurrence: US)
  Receive Date: 20210219
  Receipt Date: 20210219
  Transmission Date: 20210420
  Serious: No
  Sender: FDA-Public Use
  Company Number: US-TEVA-2021-US-1873624

PATIENT
  Age: 35 Year
  Sex: Male

DRUGS (3)
  1. DEPAKOTE ER EXTENDED RELEASE 24HOURS 500 MG [Concomitant]
     Route: 048
  2. ABILIFY [Concomitant]
     Active Substance: ARIPIPRAZOLE
     Route: 048
  3. AUSTEDO [Suspect]
     Active Substance: DEUTETRABENAZINE
     Indication: HUNTINGTON^S DISEASE
     Dosage: 24 MILLIGRAM DAILY;
     Route: 048

REACTIONS (1)
  - Sexual dysfunction [Unknown]
